FAERS Safety Report 9548014 (Version 1)
Quarter: 2013Q3

REPORT INFORMATION
  Report Type: Spontaneous
  Country: US (occurrence: None)
  Receive Date: 20130920
  Receipt Date: 20130920
  Transmission Date: 20140515
  Serious: Yes (Death, Other)
  Sender: FDA-Public Use
  Company Number: 151305

PATIENT
  Age: 48 Year
  Sex: Male

DRUGS (1)
  1. ALLOPURINOL [Suspect]
     Indication: INFLAMMATORY BOWEL DISEASE
     Dosage: UNKNOWN, UNKNOWN

REACTIONS (1)
  - Testicular cancer metastatic [None]
